FAERS Safety Report 9386947 (Version 1)
Quarter: 2013Q3

REPORT INFORMATION
  Report Type: Report from Study
  Country: CA (occurrence: CA)
  Receive Date: 20130708
  Receipt Date: 20130708
  Transmission Date: 20140515
  Serious: Yes (Other)
  Sender: FDA-Public Use
  Company Number: CA-ROCHE-1245492

PATIENT
  Age: 47 Year
  Sex: Female

DRUGS (1)
  1. NUTROPIN [Suspect]
     Indication: MUSCLE ATROPHY
     Dosage: NUSPIN
     Route: 058
     Dates: start: 2008

REACTIONS (1)
  - Musculoskeletal disorder [Unknown]
